FAERS Safety Report 12872929 (Version 2)
Quarter: 2016Q4

REPORT INFORMATION
  Report Type: Spontaneous
  Country: BR (occurrence: BR)
  Receive Date: 20161021
  Receipt Date: 20161206
  Transmission Date: 20170207
  Serious: Yes (Other)
  Sender: FDA-Public Use
  Company Number: BR-AMGEN-BRASP2016019262

PATIENT
  Age: 58 Year
  Sex: Female
  Weight: 102 kg

DRUGS (9)
  1. FOLIC ACID. [Concomitant]
     Active Substance: FOLIC ACID
     Dosage: 1 DF, 1 CP ONCE A WEEK
     Dates: start: 2002
  2. ADDERA D3 [Concomitant]
     Active Substance: CHOLECALCIFEROL
     Dosage: 10 GTT, 10 DROPS A DAY
     Dates: start: 2002, end: 201605
  3. AMLODIPINE [Concomitant]
     Active Substance: AMLODIPINE BESYLATE
     Dosage: 5 MG, 1 CP AT NIGHT
  4. PRELONE [Concomitant]
     Active Substance: PREDNISOLONE
     Dosage: 20 MG, 1 CP A DAY
     Dates: start: 2002
  5. METHOTREXATE. [Concomitant]
     Active Substance: METHOTREXATE
     Dosage: 20 MG, 8 CP OF 2.5MG EVERY MONDAY
     Dates: start: 2002
  6. ENBREL [Suspect]
     Active Substance: ETANERCEPT
     Indication: RHEUMATOID ARTHRITIS
     Dosage: 50 MG, ONCE A WEEK
     Route: 058
     Dates: start: 201511, end: 201603
  7. HYDROCHLOROTHIAZIDE. [Concomitant]
     Active Substance: HYDROCHLOROTHIAZIDE
     Dosage: 2 DF, 2 CP A DAY
  8. ENALAPRIL [Concomitant]
     Active Substance: ENALAPRIL
     Dosage: 10 MG, 1 CP A DAY
  9. DORENE [Concomitant]
     Dosage: 75 MG, 1 CP EVERY 12 HOURS
     Dates: start: 2002, end: 201605

REACTIONS (4)
  - Abasia [Not Recovered/Not Resolved]
  - Pain [Recovering/Resolving]
  - Drug ineffective for unapproved indication [Unknown]
  - Crying [Recovered/Resolved]

NARRATIVE: CASE EVENT DATE: 2016
